FAERS Safety Report 4613932-6 (Version None)
Quarter: 2005Q1

REPORT INFORMATION
  Report Type: 
  Country: None (occurrence: None)
  Receive Date: 20050316
  Receipt Date: 20050311
  Transmission Date: 20050727
  Serious: Yes (Death)
  Sender: FDA-Public Use
  Company Number: NLWYE156328OCT04

PATIENT
  Age: 37 Year
  Sex: Male

DRUGS (5)
  1. GEMTUZUMAB OZOGAMICIN (GEMTUZUMAB OZOGAMICIN, INJECTION) [Suspect]
     Indication: CHRONIC MYELOMONOCYTIC LEUKAEMIA
     Dosage: 12.4 MG 1X PER 1 DAY;
     Dates: start: 20040930, end: 20040930
  2. ARA-C (CYTARABINE, , 0) [Suspect]
     Indication: CHRONIC MYELOMONOCYTIC LEUKAEMIA
     Dosage: TOTAL CUMULATIVE DOSE OF 2500 MG
     Dates: start: 20040924, end: 20041004
  3. IDABRUBICIN (IDARUBICIN, 0) [Suspect]
     Indication: CHRONIC MYELOMONOCYTIC LEUKAEMIA
     Dosage: TOTAL CUMULATIVE DOSE OF 90 MG
     Dates: start: 20040924, end: 20040928
  4. ALLOPURINOL [Concomitant]
  5. ATNOLOL (ATENOLOL) [Concomitant]

REACTIONS (6)
  - CAPILLARY LEAK SYNDROME [None]
  - CONDITION AGGRAVATED [None]
  - HYPOALBUMINAEMIA [None]
  - INFECTION [None]
  - LUNG INFILTRATION [None]
  - THERAPY NON-RESPONDER [None]
